FAERS Safety Report 5246872-2 (Version None)
Quarter: 2007Q1

REPORT INFORMATION
  Report Type: 
  Country: None (occurrence: None)
  Receive Date: 20070226
  Receipt Date: 20070214
  Transmission Date: 20070707
  Serious: Yes (Death, Life-Threatening)
  Sender: FDA-Public Use
  Company Number: FR-PFIZER INC-2007012861

PATIENT
  Age: 78 Year
  Sex: Female

DRUGS (6)
  1. SOLU-MEDROL [Suspect]
     Dosage: DAILY DOSE:80MG
     Dates: start: 20061114, end: 20061122
  2. MEDROL [Suspect]
     Dosage: DAILY DOSE:24MG
     Route: 048
     Dates: start: 20061122, end: 20061213
  3. CORTANCYL [Suspect]
     Dosage: DAILY DOSE:60MG
     Route: 048
  4. FENTANYL [Concomitant]
     Route: 048
  5. CITALOPRAM [Concomitant]
     Route: 048
  6. TRAMADOL HCL [Concomitant]
     Route: 048

REACTIONS (1)
  - INTESTINAL PERFORATION [None]
